FAERS Safety Report 10725564 (Version 1)
Quarter: 2015Q1

REPORT INFORMATION
  Report Type: Report from Study
  Country: FR (occurrence: FR)
  Receive Date: 20150121
  Receipt Date: 20150121
  Transmission Date: 20150721
  Serious: Yes (Hospitalization, Other)
  Sender: FDA-Public Use
  Company Number: FR-ROCHE-1162544

PATIENT
  Age: 30 Year
  Sex: Female

DRUGS (12)
  1. RITUXIMAB [Suspect]
     Active Substance: RITUXIMAB
     Dosage: D15
     Route: 042
     Dates: start: 20070814
  2. METHYLPREDNISOLONE. [Concomitant]
     Active Substance: METHYLPREDNISOLONE
     Indication: PREMEDICATION
     Route: 065
  3. ETANERCEPT [Concomitant]
     Active Substance: ETANERCEPT
     Route: 065
     Dates: start: 20090602
  4. METHOTREXATE [Concomitant]
     Active Substance: METHOTREXATE
     Route: 065
  5. METHOTREXATE [Concomitant]
     Active Substance: METHOTREXATE
     Route: 065
  6. PARACETAMOL [Concomitant]
     Active Substance: ACETAMINOPHEN
     Indication: PREMEDICATION
  7. RITUXIMAB [Suspect]
     Active Substance: RITUXIMAB
     Route: 042
     Dates: start: 20081002
  8. CORTANCYL [Concomitant]
     Active Substance: PREDNISONE
     Route: 065
  9. CORTANCYL [Concomitant]
     Active Substance: PREDNISONE
     Route: 065
  10. RITUXIMAB [Suspect]
     Active Substance: RITUXIMAB
     Indication: RHEUMATOID ARTHRITIS
     Dosage: D1
     Route: 042
     Dates: start: 20070731
  11. HYDROXYCHLOROQUINE [Concomitant]
     Active Substance: HYDROXYCHLOROQUINE
     Route: 065
     Dates: start: 20100609
  12. ACTRAPID [Concomitant]
     Active Substance: INSULIN HUMAN
     Indication: PREMEDICATION

REACTIONS (9)
  - Vomiting [Recovered/Resolved]
  - Adrenal insufficiency [Recovered/Resolved]
  - Metabolic acidosis [Recovered/Resolved]
  - Diabetes mellitus inadequate control [Recovered/Resolved]
  - Phlebitis [Recovered/Resolved]
  - Bronchopneumonia [Recovered/Resolved]
  - Pneumothorax [Unknown]
  - Infusion related reaction [Recovered/Resolved]
  - Genitourinary tract infection [Recovered/Resolved]

NARRATIVE: CASE EVENT DATE: 20080201
